FAERS Safety Report 19559566 (Version 2)
Quarter: 2021Q3

REPORT INFORMATION
  Report Type: Spontaneous
  Country: PT (occurrence: PT)
  Receive Date: 20210716
  Receipt Date: 20210805
  Transmission Date: 20211014
  Serious: Yes (Other)
  Sender: FDA-Public Use
  Company Number: PT-OCTA-ALB03221PT

PATIENT
  Age: 80 Year
  Sex: Male
  Weight: 77.3 kg

DRUGS (1)
  1. ALBUNORM 20% [Suspect]
     Active Substance: ALBUMIN HUMAN
     Indication: PARACENTESIS
     Dosage: 50G EM DOSE ?NICA
     Route: 042
     Dates: start: 20210623, end: 20210623

REACTIONS (3)
  - Oxygen saturation decreased [Recovered/Resolved]
  - Wheezing [Recovered/Resolved]
  - Bronchospasm [Recovered/Resolved]

NARRATIVE: CASE EVENT DATE: 20210623
